FAERS Safety Report 15392407 (Version 1)
Quarter: 2018Q3

REPORT INFORMATION
  Report Type: Spontaneous
  Country: US (occurrence: US)
  Receive Date: 20180911
  Receipt Date: 20180911
  Transmission Date: 20181010
  Serious: Yes (Hospitalization)
  Sender: FDA-Public Use
  Company Number: None

PATIENT
  Age: 55 Year
  Sex: Female
  Weight: 57.15 kg

DRUGS (1)
  1. TRINTELLIX [Suspect]
     Active Substance: VORTIOXETINE HYDROBROMIDE
     Indication: DEPRESSION
     Dosage: ?          QUANTITY:1 TABLET(S);?
     Route: 048
     Dates: start: 20180904, end: 20180910

REACTIONS (11)
  - Palpitations [None]
  - Feeling abnormal [None]
  - Insomnia [None]
  - Confusional state [None]
  - Hypertensive emergency [None]
  - Tremor [None]
  - Panic attack [None]
  - Anxiety [None]
  - Seizure [None]
  - Chills [None]
  - Muscle spasms [None]

NARRATIVE: CASE EVENT DATE: 20180910
